FAERS Safety Report 9412374 (Version 1)
Quarter: 2013Q3

REPORT INFORMATION
  Report Type: Report from Study
  Country: DE (occurrence: DE)
  Receive Date: 20130722
  Receipt Date: 20130722
  Transmission Date: 20140515
  Serious: Yes (Hospitalization, Other)
  Sender: FDA-Public Use
  Company Number: DE-UCBSA-090218

PATIENT
  Age: 25 Year
  Sex: Female

DRUGS (13)
  1. VIMPAT [Suspect]
     Indication: EPILEPSY
     Route: 048
     Dates: start: 201306, end: 201306
  2. VIMPAT [Suspect]
     Indication: EPILEPSY
     Dosage: GRADUALLY INCREASED TO DAILY DOSE : 500 MG
     Route: 048
     Dates: start: 201306, end: 20130618
  3. LEVETIRACETAM [Suspect]
     Indication: EPILEPSY
     Route: 048
     Dates: start: 2013, end: 2013
  4. LEVETIRACETAM [Suspect]
     Indication: EPILEPSY
     Dosage: DAILY DOSE : 3000 MG
     Route: 048
     Dates: start: 2013, end: 2013
  5. LEVETIRACETAM [Suspect]
     Indication: EPILEPSY
     Dosage: DAILY DOSE : 2570 MG
     Route: 048
  6. CLEXANE [Concomitant]
     Indication: PROPHYLAXIS
     Route: 058
     Dates: start: 20130605
  7. TRIGOA [Concomitant]
  8. FRISIUM [Concomitant]
     Dates: start: 2013, end: 2013
  9. FRISIUM [Concomitant]
     Dosage: DOSE TAPERED
     Dates: start: 2013, end: 20130615
  10. FRISIUM [Concomitant]
     Dosage: DAILY DOSE : 15 MG
     Dates: start: 2013, end: 2013
  11. FRISIUM [Concomitant]
     Dosage: DOSE REDUCED
     Dates: start: 2013
  12. CARBAMAZEPINE [Concomitant]
     Dates: start: 2002, end: 2002
  13. CARBAMAZEPINE [Concomitant]
     Dates: end: 201302

REACTIONS (3)
  - Rash [Recovering/Resolving]
  - Adverse event [Unknown]
  - Convulsion [Unknown]
